FAERS Safety Report 5207100-7 (Version None)
Quarter: 2007Q1

REPORT INFORMATION
  Report Type: 
  Country: None (occurrence: None)
  Receive Date: 20070112
  Receipt Date: 20070108
  Transmission Date: 20070707
  Serious: Yes (Other)
  Sender: FDA-Public Use
  Company Number: 2006UW19472

PATIENT
  Sex: Female
  Weight: 78.6 kg

DRUGS (3)
  1. ARIMIDEX [Suspect]
     Indication: BREAST CANCER IN SITU
     Route: 048
     Dates: start: 20060201
  2. OCUVITE [Concomitant]
     Indication: EYE DISORDER
  3. ACTONEL [Concomitant]
     Indication: OSTEOPOROSIS

REACTIONS (2)
  - BALANCE DISORDER [None]
  - VISUAL DISTURBANCE [None]
